FAERS Safety Report 7530788-2 (Version None)
Quarter: 2011Q2

REPORT INFORMATION
  Report Type: 
  Country: None (occurrence: None)
  Receive Date: 20110607
  Receipt Date: 20110520
  Transmission Date: 20111010
  Serious: Yes (Death)
  Sender: FDA-Public Use
  Company Number: US-WATSON-2011-07558

PATIENT

DRUGS (2)
  1. FLUOROURACIL [Suspect]
     Indication: ANAL CANCER
     Dosage: 1000MG/M2/DAY DAY 1-4, REPEAT AFTER 2 WEEKS
     Route: 042
  2. CISPLATIN [Suspect]
     Indication: ANAL CANCER
     Dosage: 75 MG/M2 ON DAY 1
     Route: 042

REACTIONS (1)
  - SEPSIS [None]
